FAERS Safety Report 8189457 (Version 2)
Quarter: 2012Q4

REPORT INFORMATION
  Report Type: 
  Country: US (occurrence: US)
  Receive Date: 20111019
  Receipt Date: 20121121
  Transmission Date: 20130627
  Serious: No
  Sender: FDA-Public Use
  Company Number: US-BRISTOL-MYERS SQUIBB COMPANY-15549389

PATIENT
  Age: 66 Year
  Sex: Female

DRUGS (4)
  1. AVALIDE [Suspect]
  2. SIMVASTATIN [Concomitant]
  3. METOPROLOL [Concomitant]
  4. VITAMINS [Concomitant]

REACTIONS (2)
  - Pain [Recovering/Resolving]
  - Product quality issue [None]
